FAERS Safety Report 16132767 (Version 1)
Quarter: 2019Q1

REPORT INFORMATION
  Report Type: Spontaneous
  Country: US (occurrence: US)
  Receive Date: 20190226
  Receipt Date: 20190226
  Transmission Date: 20190418
  Serious: Yes (Life-Threatening, Other)
  Sender: FDA-Public Use
  Company Number: None

PATIENT
  Age: 54 Year
  Sex: Female
  Weight: 61.69 kg

DRUGS (1)
  1. LAMOTRIGINE. [Suspect]
     Active Substance: LAMOTRIGINE
     Indication: BIPOLAR DISORDER
     Dates: start: 2005, end: 2018

REACTIONS (12)
  - Mania [None]
  - Disturbance in attention [None]
  - Suicidal ideation [None]
  - Withdrawal syndrome [None]
  - Loss of personal independence in daily activities [None]
  - Hypersomnia [None]
  - Influenza like illness [None]
  - Depression [None]
  - Feeling abnormal [None]
  - Drug ineffective [None]
  - Insomnia [None]
  - Anger [None]
